FAERS Safety Report 9643214 (Version 2)
Quarter: 2013Q4

REPORT INFORMATION
  Report Type: Spontaneous
  Country: NO (occurrence: NO)
  Receive Date: 20131024
  Receipt Date: 20131112
  Transmission Date: 20140711
  Serious: Yes (Hospitalization)
  Sender: FDA-Public Use
  Company Number: NO-009507513-1310NOR008495

PATIENT
  Age: 55 Year
  Sex: Male

DRUGS (3)
  1. THERAPY UNSPECIFIED [Suspect]
     Dosage: UNK
  2. PEGASYS [Suspect]
     Dosage: UNK
     Dates: start: 20121206, end: 2013
  3. COPEGUS [Suspect]
     Dosage: UNK
     Dates: start: 20121206, end: 2013

REACTIONS (7)
  - Mental disorder [Unknown]
  - Anxiety [Unknown]
  - Depression [Unknown]
  - Malnutrition [Unknown]
  - Weight decreased [Unknown]
  - Loose tooth [Unknown]
  - Hepatitis C RNA positive [Unknown]
